FAERS Safety Report 25078323 (Version 1)
Quarter: 2025Q1

REPORT INFORMATION
  Report Type: Spontaneous
  Country: ES (occurrence: ES)
  Receive Date: 20250314
  Receipt Date: 20250314
  Transmission Date: 20250409
  Serious: Yes (Hospitalization, Other)
  Sender: AUROBINDO
  Company Number: ES-PFIZER INC-2019414325

PATIENT
  Age: 81 Year
  Sex: Female

DRUGS (2)
  1. SERTRALINE [Suspect]
     Active Substance: SERTRALINE HYDROCHLORIDE
     Indication: Depression
     Dosage: 100 MILLIGRAM, ONCE A DAY
     Route: 065
  2. SERTRALINE [Suspect]
     Active Substance: SERTRALINE HYDROCHLORIDE
     Dosage: 50 MILLIGRAM, ONCE A DAY
     Route: 065

REACTIONS (6)
  - Parkinson^s disease [Recovered/Resolved]
  - Hypokinesia [Recovered/Resolved]
  - Muscle rigidity [Recovered/Resolved]
  - Parkinsonism [Recovered/Resolved]
  - Resting tremor [Recovered/Resolved]
  - Salivary hypersecretion [Recovered/Resolved]
